FAERS Safety Report 21172133 (Version 1)
Quarter: 2022Q3

REPORT INFORMATION
  Report Type: Spontaneous
  Country: US (occurrence: None)
  Receive Date: 20220803
  Receipt Date: 20220803
  Transmission Date: 20221027
  Serious: No
  Sender: FDA-Public Use
  Company Number: None

PATIENT
  Age: 62 Year
  Sex: Female
  Weight: 74.25 kg

DRUGS (13)
  1. MAGNESIUM CITRATE LEMON [Suspect]
     Active Substance: MAGNESIUM CITRATE
     Indication: Constipation
     Route: 048
     Dates: start: 20220305, end: 20220305
  2. ESTROGENS [Concomitant]
     Active Substance: ESTROGENS
  3. TESTOSTERONE [Concomitant]
     Active Substance: TESTOSTERONE
  4. PROGESTERONE [Concomitant]
     Active Substance: PROGESTERONE
  5. NITROFURANTOIN [Concomitant]
     Active Substance: NITROFURANTOIN
  6. B12 injections [Concomitant]
  7. ZINC [Concomitant]
     Active Substance: ZINC
  8. St. John^s walk [Concomitant]
  9. VITAMIN D [Concomitant]
     Active Substance: VITAMIN D NOS
  10. ASPIRIN [Concomitant]
     Active Substance: ASPIRIN
  11. HERBALS\TURMERIC [Concomitant]
     Active Substance: HERBALS\TURMERIC
  12. FISH OIL [Concomitant]
     Active Substance: FISH OIL
  13. MELATONIN [Concomitant]
     Active Substance: MELATONIN

REACTIONS (4)
  - Recalled product administered [None]
  - Abdominal pain [None]
  - Nausea [None]
  - Vomiting [None]

NARRATIVE: CASE EVENT DATE: 20220305
